FAERS Safety Report 6483885-7 (Version None)
Quarter: 2009Q4

REPORT INFORMATION
  Report Type: 
  Country: None (occurrence: None)
  Receive Date: 20091209
  Receipt Date: 20091110
  Transmission Date: 20100525
  Serious: Yes (Death, Life-Threatening, Hospitalization)
  Sender: FDA-Public Use
  Company Number: GR-SANOFI-AVENTIS-200820670GDDC

PATIENT
  Age: 62 Year
  Sex: Male
  Weight: 78 kg

DRUGS (4)
  1. DOCETAXEL [Suspect]
     Dosage: DOSE UNIT: 75 MG/M**2
     Route: 042
     Dates: start: 20080904, end: 20080904
  2. CISPLATIN [Suspect]
     Dosage: DOSE UNIT: 75 MG/M**2
     Route: 042
     Dates: start: 20080904, end: 20080904
  3. ATENOLOL/CHLORTALIDONE [Concomitant]
     Indication: BLOOD PRESSURE INADEQUATELY CONTROLLED
  4. CARDIL [Concomitant]
     Indication: BLOOD PRESSURE INADEQUATELY CONTROLLED

REACTIONS (1)
  - RENAL FAILURE ACUTE [None]
